FAERS Safety Report 6686487-2 (Version None)
Quarter: 2010Q2

REPORT INFORMATION
  Report Type: 
  Country: None (occurrence: None)
  Receive Date: 20100415
  Receipt Date: 20100407
  Transmission Date: 20101027
  Serious: No
  Sender: FDA-Public Use
  Company Number: 009918

PATIENT
  Sex: Male
  Weight: 81.6 kg

DRUGS (7)
  1. KEPPRA [Suspect]
     Indication: CONVULSION
     Dosage: (1000 MG ORAL)
     Route: 048
     Dates: start: 20100201
  2. KEPPRA [Suspect]
     Indication: CONVULSION
     Dosage: DOSE BID ORAL
     Route: 048
     Dates: start: 20090101, end: 20100201
  3. FENTANYL [Concomitant]
  4. TARCEVA [Concomitant]
  5. PAROXETINE HCL [Concomitant]
  6. LORAZEPAM [Concomitant]
  7. HYDROCODONE BITARTRATE [Concomitant]

REACTIONS (2)
  - CONVULSION [None]
  - DRUG THERAPY CHANGED [None]
